FAERS Safety Report 8834794 (Version 2)
Quarter: 2013Q1

REPORT INFORMATION
  Report Type: Spontaneous
  Country: DK (occurrence: None)
  Receive Date: 20121009
  Receipt Date: 20121025
  Transmission Date: 20140127
  Serious: Yes (Hospitalization)
  Sender: FDA-Public Use
  Company Number: 2012MA011935

PATIENT
  Age: 47 Year
  Sex: Female

DRUGS (10)
  1. OXALIPLATIN [Suspect]
     Indication: COLON CANCER
     Route: 042
     Dates: start: 20061214
  2. CAPECITABINE [Suspect]
     Indication: COLON CANCER
     Route: 048
     Dates: start: 20061214
  3. ASA (ACETYLSALICYLIC ACID) [Suspect]
     Dates: start: 2007, end: 20070116
  4. CETUXIMAB [Suspect]
  5. BEVACIZUMAB [Suspect]
     Route: 042
     Dates: start: 20061214
  6. METOCLOPRAMIDE [Concomitant]
  7. LOPERAMIDE [Concomitant]
  8. LANSOPRAZOLE [Concomitant]
  9. LORAZEPAM [Concomitant]
  10. DEXAMETHASONE [Concomitant]

REACTIONS (3)
  - Throat tightness [None]
  - Faeces discoloured [None]
  - Vomiting [None]
